FAERS Safety Report 19212153 (Version 1)
Quarter: 2021Q2

REPORT INFORMATION
  Report Type: Spontaneous
  Country: US (occurrence: US)
  Receive Date: 20210503
  Receipt Date: 20210503
  Transmission Date: 20210717
  Serious: No
  Sender: FDA-Public Use
  Company Number: None

PATIENT
  Age: 76 Year
  Sex: Male
  Weight: 92 kg

DRUGS (2)
  1. LINEZOLID (LINEZOLID 600MG TAB) [Suspect]
     Active Substance: LINEZOLID
     Indication: STAPHYLOCOCCAL INFECTION
     Route: 048
     Dates: start: 20200117, end: 20200118
  2. LINEZOLID (LINEZOLID 600MG TAB) [Suspect]
     Active Substance: LINEZOLID
     Indication: GROIN INFECTION
     Route: 048
     Dates: start: 20200117, end: 20200118

REACTIONS (2)
  - Rash macular [None]
  - Rash papular [None]

NARRATIVE: CASE EVENT DATE: 20200117
